FAERS Safety Report 8825071 (Version 1)
Quarter: 2012Q4

REPORT INFORMATION
  Report Type: 
  Country: GB (occurrence: GB)
  Receive Date: 20121004
  Receipt Date: 20121004
  Transmission Date: 20130627
  Serious: Yes (Other)
  Sender: FDA-Public Use
  Company Number: GB-ELI_LILLY_AND_COMPANY-GB201209006150

PATIENT
  Age: 32 Year
  Sex: Male
  Weight: 85.26 kg

DRUGS (1)
  1. PROZAC [Suspect]
     Indication: ANXIETY
     Dosage: 20 mg, qd
     Route: 048
     Dates: start: 20120515

REACTIONS (4)
  - Temperature intolerance [Not Recovered/Not Resolved]
  - Muscle spasms [Not Recovered/Not Resolved]
  - Hyperhidrosis [Not Recovered/Not Resolved]
  - Sleep disorder [Not Recovered/Not Resolved]
